FAERS Safety Report 20231655 (Version 1)
Quarter: 2021Q4

REPORT INFORMATION
  Report Type: Spontaneous
  Country: US (occurrence: None)
  Receive Date: 20211223
  Receipt Date: 20211223
  Transmission Date: 20220303
  Serious: No
  Sender: FDA-Public Use
  Company Number: None

PATIENT
  Age: 26 Year
  Sex: Male
  Weight: 81.2 kg

DRUGS (1)
  1. GAMUNEX-C [Suspect]
     Active Substance: HUMAN IMMUNOGLOBULIN G
     Indication: Dermatomyositis
     Route: 042
     Dates: start: 20210827, end: 20210827

REACTIONS (3)
  - Urticaria [None]
  - Chest discomfort [None]
  - Pruritus [None]

NARRATIVE: CASE EVENT DATE: 20210827
